FAERS Safety Report 17088692 (Version 1)
Quarter: 2019Q4

REPORT INFORMATION
  Report Type: Spontaneous
  Country: CN (occurrence: CN)
  Receive Date: 20191128
  Receipt Date: 20191128
  Transmission Date: 20200122
  Serious: Yes (Other)
  Sender: FDA-Public Use
  Company Number: CN-B.I. PHARMACEUTICALS,INC./RIDGEFIELD-2019-BI-115268

PATIENT
  Age: 61 Year
  Sex: Female
  Weight: 58.2 kg

DRUGS (6)
  1. ATROVENT [Suspect]
     Active Substance: IPRATROPIUM BROMIDE
     Indication: PRODUCTIVE COUGH
  2. PULMICORT TURBUHALER [Concomitant]
     Active Substance: BUDESONIDE
     Indication: PRODUCTIVE COUGH
  3. BRICANYL [Concomitant]
     Active Substance: TERBUTALINE SULFATE
     Indication: COUGH
     Route: 055
     Dates: start: 20191025, end: 20191026
  4. BRICANYL [Concomitant]
     Active Substance: TERBUTALINE SULFATE
     Indication: PRODUCTIVE COUGH
  5. PULMICORT TURBUHALER [Concomitant]
     Active Substance: BUDESONIDE
     Indication: COUGH
     Dosage: DOSAGE FORM: SUSPENSION
     Route: 055
     Dates: start: 20191025, end: 20191026
  6. ATROVENT [Suspect]
     Active Substance: IPRATROPIUM BROMIDE
     Indication: COUGH
     Route: 055
     Dates: start: 20191025, end: 20191026

REACTIONS (3)
  - Supraventricular tachycardia [Recovering/Resolving]
  - Palpitations [Recovering/Resolving]
  - Dyspnoea [Recovering/Resolving]

NARRATIVE: CASE EVENT DATE: 20191026
